FAERS Safety Report 24720778 (Version 1)
Quarter: 2024Q4

REPORT INFORMATION
  Report Type: Spontaneous
  Country: BR (occurrence: BR)
  Receive Date: 20241211
  Receipt Date: 20241211
  Transmission Date: 20250115
  Serious: Yes (Hospitalization)
  Sender: JOHNSON AND JOHNSON
  Company Number: BR-JNJFOC-20241213887

PATIENT
  Sex: Female

DRUGS (7)
  1. HALDOL [Suspect]
     Active Substance: HALOPERIDOL
     Indication: Schizophrenia
     Route: 048
     Dates: start: 2003
  2. HALDOL [Suspect]
     Active Substance: HALOPERIDOL
     Indication: Mental disorder
  3. HALDOL [Suspect]
     Active Substance: HALOPERIDOL
     Indication: Behaviour disorder
  4. BIPERIDEN [Suspect]
     Active Substance: BIPERIDEN
     Indication: Product used for unknown indication
     Route: 065
  5. AMPLICTIL [Suspect]
     Active Substance: CHLORPROMAZINE HYDROCHLORIDE
     Indication: Product used for unknown indication
     Route: 065
  6. FENERGAN [CEPHAELIS SPP. FLUID EXTRACT;CITRIC ACID;PROMETHAZINE HYDROC [Concomitant]
     Indication: Sleep disorder therapy
     Route: 065
     Dates: start: 2003
  7. LEVOMEPROMAZINE [Concomitant]
     Active Substance: LEVOMEPROMAZINE
     Indication: Product used for unknown indication
     Route: 065

REACTIONS (9)
  - Hospitalisation [Unknown]
  - Tachycardia [Recovering/Resolving]
  - Off label use [Unknown]
  - Dyskinesia [Recovering/Resolving]
  - Pressure of speech [Unknown]
  - Memory impairment [Recovering/Resolving]
  - Insomnia [Recovering/Resolving]
  - Depressed mood [Recovering/Resolving]
  - Enuresis [Recovering/Resolving]

NARRATIVE: CASE EVENT DATE: 20030601
